FAERS Safety Report 23752359 (Version 3)
Quarter: 2025Q1

REPORT INFORMATION
  Report Type: Spontaneous
  Country: PT (occurrence: PT)
  Receive Date: 20240417
  Receipt Date: 20250130
  Transmission Date: 20250409
  Serious: Yes (Hospitalization)
  Sender: SANOFI AVENTIS
  Company Number: None

PATIENT
  Age: 61 Year
  Sex: Female
  Weight: 70 kg

DRUGS (16)
  1. DUPIXENT [Suspect]
     Active Substance: DUPILUMAB
     Indication: Neurodermatitis
     Dosage: 300 MG, Q15D
     Route: 058
     Dates: start: 20240118, end: 20240315
  2. LINAGLIPTIN [Concomitant]
     Active Substance: LINAGLIPTIN
  3. MIRTAZAPINE [Concomitant]
     Active Substance: MIRTAZAPINE
  4. HYDROXYZINE [Concomitant]
     Active Substance: HYDROXYZINE HYDROCHLORIDE
  5. GABAPENTIN [Concomitant]
     Active Substance: GABAPENTIN
  6. ASPIRIN [Concomitant]
     Active Substance: ASPIRIN
  7. ROSUVASTATIN [Concomitant]
     Active Substance: ROSUVASTATIN
  8. RITONAVIR [Concomitant]
     Active Substance: RITONAVIR
  9. OMEPRAZOLE [Concomitant]
     Active Substance: OMEPRAZOLE
  10. PERINDOPRIL [Concomitant]
     Active Substance: PERINDOPRIL
  11. TRAZODONE HYDROCHLORIDE [Concomitant]
     Active Substance: TRAZODONE HYDROCHLORIDE
  12. FOLIC ACID [Concomitant]
     Active Substance: FOLIC ACID
  13. BISOPROLOL [Concomitant]
     Active Substance: BISOPROLOL
  14. HIDROXIZINA [HYDROXYZINE] [Concomitant]
  15. DARUNAVIR [Concomitant]
     Active Substance: DARUNAVIR
  16. GABAPENTIN [Concomitant]
     Active Substance: GABAPENTIN

REACTIONS (1)
  - Acarodermatitis [Recovered/Resolved]

NARRATIVE: CASE EVENT DATE: 20240318
